FAERS Safety Report 7094638-3 (Version None)
Quarter: 2010Q4

REPORT INFORMATION
  Report Type: 
  Country: None (occurrence: None)
  Receive Date: 20101110
  Receipt Date: 20101026
  Transmission Date: 20110411
  Serious: Yes (Other)
  Sender: FDA-Public Use
  Company Number: BE-GENENTECH-308367

PATIENT
  Sex: Female

DRUGS (4)
  1. XOLAIR [Suspect]
     Indication: ASTHMA
     Dosage: 300 MG, 1/MONTH
     Route: 058
     Dates: start: 20091222
  2. SYMBICORT [Concomitant]
     Indication: PRODUCT USED FOR UNKNOWN INDICATION
  3. SPIRIVA [Concomitant]
     Indication: PRODUCT USED FOR UNKNOWN INDICATION
  4. XANTHIUM [Concomitant]
     Indication: PRODUCT USED FOR UNKNOWN INDICATION

REACTIONS (8)
  - INCORRECT ROUTE OF DRUG ADMINISTRATION [None]
  - LESION EXCISION [None]
  - LUNG DISORDER [None]
  - LYMPHOMA [None]
  - MALIGNANT MELANOMA [None]
  - NASOPHARYNGITIS [None]
  - SKIN LESION [None]
  - SKIN NODULE [None]
